FAERS Safety Report 5708253-4 (Version None)
Quarter: 2008Q2

REPORT INFORMATION
  Report Type: 
  Country: None (occurrence: None)
  Receive Date: 20080417
  Receipt Date: 20080409
  Transmission Date: 20081010
  Serious: Yes (Hospitalization)
  Sender: FDA-Public Use
  Company Number: JP-ROCHE-558515

PATIENT
  Age: 9 Year
  Sex: Female

DRUGS (1)
  1. TAMIFLU [Suspect]
     Route: 065

REACTIONS (4)
  - ELECTROENCEPHALOGRAM ABNORMAL [None]
  - FAECAL INCONTINENCE [None]
  - LOSS OF CONSCIOUSNESS [None]
  - VISUAL DISTURBANCE [None]
